FAERS Safety Report 14992435 (Version 1)
Quarter: 2018Q2

REPORT INFORMATION
  Report Type: Other
  Country: AU (occurrence: AU)
  Receive Date: 20180609
  Receipt Date: 20180609
  Transmission Date: 20180711
  Serious: Yes (Other)
  Sender: FDA-Public Use
  Company Number: AU-DENTSPLY-2018SCDP000182

PATIENT
  Age: 75 Year
  Sex: Male

DRUGS (1)
  1. LIDOCAINE. [Suspect]
     Active Substance: LIDOCAINE
     Indication: DENTAL LOCAL ANAESTHESIA
     Dosage: UNK
     Route: 004

REACTIONS (2)
  - Type IV hypersensitivity reaction [None]
  - Swelling face [Recovered/Resolved]
